FAERS Safety Report 25913715 (Version 1)
Quarter: 2025Q4

REPORT INFORMATION
  Report Type: Spontaneous
  Country: CN (occurrence: CN)
  Receive Date: 20251013
  Receipt Date: 20251013
  Transmission Date: 20260117
  Serious: Yes (Other)
  Sender: NOVARTIS
  Company Number: CN-002147023-NVSC2025CN152709

PATIENT
  Age: 57 Year
  Sex: Male
  Weight: 85 kg

DRUGS (2)
  1. TRILEPTAL [Suspect]
     Active Substance: OXCARBAZEPINE
     Indication: Rash
     Dosage: 300 MG, BID
     Route: 048
     Dates: start: 20250917, end: 20250922
  2. GINKGO [Concomitant]
     Active Substance: GINKGO
     Indication: Cerebral ischaemia
     Dosage: 70 MG, QD (EXTRACT OF)
     Route: 041
     Dates: start: 20250730, end: 20250812

REACTIONS (4)
  - Rash [Recovering/Resolving]
  - Dermatitis allergic [Unknown]
  - Drug eruption [Unknown]
  - Off label use [Unknown]

NARRATIVE: CASE EVENT DATE: 20250921
